FAERS Safety Report 6725698-4 (Version None)
Quarter: 2010Q2

REPORT INFORMATION
  Report Type: 
  Country: None (occurrence: None)
  Receive Date: 20100513
  Receipt Date: 20100513
  Transmission Date: 20101027
  Serious: Yes (Life-Threatening, Hospitalization)
  Sender: FDA-Public Use
  Company Number: None

PATIENT
  Age: 32 Year
  Sex: Female
  Weight: 104.3273 kg

DRUGS (1)
  1. ZIPRASIDONE HCL [Suspect]
     Indication: DEPRESSION
     Dosage: 40MG DAILY PO
     Route: 048
     Dates: start: 20100506, end: 20100508

REACTIONS (1)
  - ANGIOEDEMA [None]
